FAERS Safety Report 19674527 (Version 3)
Quarter: 2021Q3

REPORT INFORMATION
  Report Type: Spontaneous
  Country: GB (occurrence: GB)
  Receive Date: 20210809
  Receipt Date: 20210823
  Transmission Date: 20211014
  Serious: Yes (Other)
  Sender: FDA-Public Use
  Company Number: GB-SA-2021SA259256

PATIENT
  Sex: Male

DRUGS (5)
  1. TAMSULOSINA [Suspect]
     Active Substance: TAMSULOSIN HYDROCHLORIDE
     Indication: PROSTATIC DISORDER
     Dosage: UNK
     Route: 065
     Dates: start: 20180301
  2. MIRABEGRON [Suspect]
     Active Substance: MIRABEGRON
     Indication: PROSTATIC DISORDER
  3. TAMSULOSINA [Suspect]
     Active Substance: TAMSULOSIN HYDROCHLORIDE
     Indication: BLADDER DISORDER
  4. VASRAN [Concomitant]
     Dosage: UNK
     Route: 065
     Dates: start: 20190329
  5. MIRABEGRON [Suspect]
     Active Substance: MIRABEGRON
     Indication: BLADDER DISORDER
     Dosage: UNK
     Route: 065
     Dates: start: 20200304

REACTIONS (8)
  - Lethargy [Unknown]
  - Drug ineffective [Unknown]
  - Nocturia [Unknown]
  - Therapeutic product effect incomplete [Unknown]
  - Product use in unapproved indication [Unknown]
  - Fatigue [Unknown]
  - Gait disturbance [Unknown]
  - Drug ineffective for unapproved indication [Unknown]

NARRATIVE: CASE EVENT DATE: 20200304
